FAERS Safety Report 5927968-6 (Version None)
Quarter: 2008Q4

REPORT INFORMATION
  Report Type: 
  Country: None (occurrence: None)
  Receive Date: 20081023
  Receipt Date: 20081016
  Transmission Date: 20090506
  Serious: Yes (Other)
  Sender: FDA-Public Use
  Company Number: JP-ASTRAZENECA-2008AP08098

PATIENT
  Age: 80 Year
  Sex: Female

DRUGS (1)
  1. MARCAIN SPINAL 0.5% ISOBARIC [Suspect]
     Indication: SPINAL ANAESTHESIA
     Dosage: DOSE UNKNOWN
     Route: 029

REACTIONS (2)
  - BLOOD PRESSURE DECREASED [None]
  - TACHYARRHYTHMIA [None]
